FAERS Safety Report 4732465-X (Version None)
Quarter: 2005Q3

REPORT INFORMATION
  Report Type: 
  Country: None (occurrence: None)
  Receive Date: 20050803
  Receipt Date: 20050727
  Transmission Date: 20060218
  Serious: Yes (Other)
  Sender: FDA-Public Use
  Company Number: US-JNJFOC-20050800055

PATIENT
  Age: 44 Year
  Sex: Male
  Weight: 88 kg

DRUGS (1)
  1. LEVAQUIN [Suspect]
     Indication: MASTOIDITIS
     Route: 048
     Dates: start: 20050507, end: 20050510

REACTIONS (7)
  - DEAFNESS BILATERAL [None]
  - DIARRHOEA [None]
  - MUSCLE SPASMS [None]
  - NERVOUS SYSTEM DISORDER [None]
  - RASH [None]
  - TREMOR [None]
  - WEIGHT DECREASED [None]
